FAERS Safety Report 15607778 (Version 1)
Quarter: 2018Q4

REPORT INFORMATION
  Report Type: Spontaneous
  Country: US (occurrence: US)
  Receive Date: 20181107
  Receipt Date: 20181107
  Transmission Date: 20190205
  Serious: No
  Sender: FDA-Public Use
  Company Number: None

PATIENT
  Age: 61 Year
  Sex: Male

DRUGS (2)
  1. MAVYRET [Suspect]
     Active Substance: GLECAPREVIR\PIBRENTASVIR
     Indication: DIVERTICULITIS
     Dates: start: 201810
  2. DIGOXIN 0.25MG [Concomitant]

REACTIONS (3)
  - Vomiting [None]
  - Arrhythmia [None]
  - Asthenia [None]

NARRATIVE: CASE EVENT DATE: 20181022
